FAERS Safety Report 24795623 (Version 3)
Quarter: 2025Q1

REPORT INFORMATION
  Report Type: Report from Study
  Country: CO (occurrence: CO)
  Receive Date: 20250101
  Receipt Date: 20250212
  Transmission Date: 20250408
  Serious: Yes (Hospitalization)
  Sender: JOHNSON AND JOHNSON
  Company Number: CO-JNJFOC-20241265166

PATIENT
  Age: 42 Year
  Sex: Male
  Weight: 50 kg

DRUGS (4)
  1. INVEGA SUSTENNA [Suspect]
     Active Substance: PALIPERIDONE PALMITATE
     Indication: Schizophrenia
     Dosage: LAST APPLICATION WAS DONE ON :04-JAN-2025
     Route: 030
     Dates: start: 20190815
  2. INVEGA SUSTENNA [Suspect]
     Active Substance: PALIPERIDONE PALMITATE
     Route: 030
     Dates: start: 20190815
  3. INVEGA SUSTENNA [Suspect]
     Active Substance: PALIPERIDONE PALMITATE
  4. CLOZAPINE [Concomitant]
     Active Substance: CLOZAPINE

REACTIONS (6)
  - Food refusal [Not Recovered/Not Resolved]
  - Vomiting [Not Recovered/Not Resolved]
  - Oedema peripheral [Not Recovered/Not Resolved]
  - Anaemia [Not Recovered/Not Resolved]
  - Illness [Not Recovered/Not Resolved]
  - Persistent depressive disorder [Not Recovered/Not Resolved]

NARRATIVE: CASE EVENT DATE: 20241201
